FAERS Safety Report 4673323-9 (Version None)
Quarter: 2005Q2

REPORT INFORMATION
  Report Type: 
  Country: None (occurrence: None)
  Receive Date: 20050524
  Receipt Date: 20050524
  Transmission Date: 20051028
  Serious: Yes (Hospitalization)
  Sender: FDA-Public Use
  Company Number: None

PATIENT
  Age: 63 Year
  Sex: Male
  Weight: 74.8435 kg

DRUGS (5)
  1. NAPROXEN [Suspect]
     Indication: OSTEOARTHRITIS
     Dosage: 250 MG BID PRN
     Dates: start: 20020820, end: 20050120
  2. SIMVASTATIN [Concomitant]
  3. SETRALINE [Concomitant]
  4. METOPROLOL [Concomitant]
  5. SL NTG [Concomitant]

REACTIONS (5)
  - EROSIVE OESOPHAGITIS [None]
  - FAECAL OCCULT BLOOD POSITIVE [None]
  - HAEMATEMESIS [None]
  - MELAENA [None]
  - OESOPHAGEAL ULCER [None]
